FAERS Safety Report 18604348 (Version 4)
Quarter: 2025Q2

REPORT INFORMATION
  Report Type: Spontaneous
  Country: DE (occurrence: DE)
  Receive Date: 20201211
  Receipt Date: 20250605
  Transmission Date: 20250717
  Serious: Yes (Hospitalization)
  Sender: ALEXION PHARMACEUTICALS
  Company Number: 2020SF63156

PATIENT
  Age: 50 Year
  Weight: 85 kg

DRUGS (9)
  1. FULVESTRANT [Suspect]
     Active Substance: FULVESTRANT
  2. FULVESTRANT [Suspect]
     Active Substance: FULVESTRANT
  3. PALBOCICLIB [Suspect]
     Active Substance: PALBOCICLIB
     Indication: Breast cancer
     Dosage: 125 MILLIGRAM, QD
  4. IBANDRONIC ACID [Suspect]
     Active Substance: IBANDRONIC ACID
     Indication: Product used for unknown indication
  5. CODEINE [Concomitant]
     Active Substance: CODEINE
     Indication: Cough
  6. LEVOTHYROXINE SODIUM [Concomitant]
     Active Substance: LEVOTHYROXINE SODIUM
     Indication: Hypothyroidism
  7. IBUPROFEN [Concomitant]
     Active Substance: IBUPROFEN
     Indication: Pain
  8. PANTOPRAZOLE [Concomitant]
     Active Substance: PANTOPRAZOLE
     Indication: Nausea
  9. ACETAMINOPHEN [Concomitant]
     Active Substance: ACETAMINOPHEN
     Indication: Cough

REACTIONS (4)
  - Oesophageal stenosis [Recovered/Resolved]
  - Dysphagia [Recovered/Resolved]
  - Faecaloma [Recovered/Resolved]
  - Interstitial lung disease [Recovered/Resolved]
